FAERS Safety Report 19356318 (Version 1)
Quarter: 2021Q2

REPORT INFORMATION
  Report Type: Spontaneous
  Country: US (occurrence: US)
  Receive Date: 20210601
  Receipt Date: 20210601
  Transmission Date: 20210717
  Serious: Yes (Other)
  Sender: FDA-Public Use
  Company Number: None

PATIENT
  Age: 69 Year
  Sex: Male
  Weight: 70.31 kg

DRUGS (12)
  1. LEVOTHYROXINE. [Concomitant]
     Active Substance: LEVOTHYROXINE
  2. MULTIVITAMIN [Concomitant]
     Active Substance: VITAMINS
  3. TEMAZEPAM. [Concomitant]
     Active Substance: TEMAZEPAM
  4. ONDANSETRON [Concomitant]
     Active Substance: ONDANSETRON
  5. AMIODARONE [Concomitant]
     Active Substance: AMIODARONE
  6. ASPIRIN. [Concomitant]
     Active Substance: ASPIRIN
  7. ROSUSVASTATIN [Concomitant]
  8. CARVEDILOL. [Concomitant]
     Active Substance: CARVEDILOL
  9. GABAPENTIN. [Concomitant]
     Active Substance: GABAPENTIN
  10. INLYTA [Suspect]
     Active Substance: AXITINIB
     Indication: RENAL CANCER
     Route: 048
     Dates: start: 20210506
  11. ISOSORBIDE DINITRATE. [Concomitant]
     Active Substance: ISOSORBIDE DINITRATE
  12. TAMSULOSIN [Concomitant]
     Active Substance: TAMSULOSIN

REACTIONS (7)
  - Fatigue [None]
  - Nausea [None]
  - Decreased appetite [None]
  - Dysphonia [None]
  - Weight decreased [None]
  - Insomnia [None]
  - Constipation [None]
